FAERS Safety Report 4657553-8 (Version None)
Quarter: 2005Q2

REPORT INFORMATION
  Report Type: 
  Country: None (occurrence: None)
  Receive Date: 20050510
  Receipt Date: 20050428
  Transmission Date: 20051028
  Serious: Yes (Life-Threatening, Hospitalization)
  Sender: FDA-Public Use
  Company Number: GB-BRISTOL-MYERS SQUIBB COMPANY-12952081

PATIENT
  Age: 67 Year
  Sex: Male

DRUGS (8)
  1. METFORMIN HCL [Suspect]
     Indication: DIABETES MELLITUS NON-INSULIN-DEPENDENT
     Route: 048
     Dates: end: 20050411
  2. RAMIPRIL [Concomitant]
  3. BENDROFLUAZIDE [Concomitant]
  4. ASPIRIN [Concomitant]
  5. PREDNISOLONE [Concomitant]
  6. ATORVASTATIN CALCIUM [Concomitant]
  7. GLICLAZIDE [Concomitant]
  8. NIFEDIPINE [Concomitant]

REACTIONS (4)
  - DIARRHOEA [None]
  - LACTIC ACIDOSIS [None]
  - MALAISE [None]
  - RENAL FAILURE [None]
